FAERS Safety Report 4720557-0 (Version None)
Quarter: 2005Q3

REPORT INFORMATION
  Report Type: 
  Country: None (occurrence: None)
  Receive Date: 20050719
  Receipt Date: 20050706
  Transmission Date: 20060218
  Serious: Yes (Hospitalization, Other)
  Sender: FDA-Public Use
  Company Number: USA0507102168

PATIENT
  Age: 84 Year
  Sex: Female

DRUGS (16)
  1. FORTEO [Suspect]
     Indication: OSTEOPOROSIS
     Dates: start: 20050401
  2. SYNTHROID [Concomitant]
  3. BENICAR [Concomitant]
  4. TIAZAC [Concomitant]
  5. COREG [Concomitant]
  6. LIPITOR [Concomitant]
  7. NEXIUM [Concomitant]
  8. ZYRTEC [Concomitant]
  9. CHONDROITIN W/GLUCOSAMINE [Concomitant]
  10. MULTIVITAMINS NOS (MULTIVITAMINS NOS) [Concomitant]
  11. CITRACAL (CALCIUM CITRATE) [Concomitant]
  12. VITAMIN E (HERBAL OIL NOS) [Concomitant]
  13. FISH OIL [Concomitant]
  14. NITROFURANTOIN [Concomitant]
  15. ULTRAM [Concomitant]
  16. TYLENOL         (PARACETAMOL) [Concomitant]

REACTIONS (2)
  - PHARMACEUTICAL PRODUCT COMPLAINT [None]
  - RECTAL HAEMORRHAGE [None]
